FAERS Safety Report 13688302 (Version 2)
Quarter: 2018Q2

REPORT INFORMATION
  Report Type: Report from Study
  Country: CA (occurrence: CA)
  Receive Date: 20170626
  Receipt Date: 20180424
  Transmission Date: 20180711
  Serious: Yes (Death, Other)
  Sender: FDA-Public Use
  Company Number: CA-ROCHE-1640143

PATIENT
  Age: 72 Year
  Sex: Male
  Weight: 84 kg

DRUGS (10)
  1. RITUXAN [Suspect]
     Active Substance: RITUXIMAB
     Indication: VASCULITIS
     Dosage: LAST DOSE: 02/NOV/2015.
     Route: 042
     Dates: start: 20150928, end: 20170712
  2. DIPHENHYDRAMINE HCL [Concomitant]
     Active Substance: DIPHENHYDRAMINE HYDROCHLORIDE
     Indication: PREMEDICATION
     Route: 048
     Dates: start: 20150928
  3. ATORVASTATIN [Concomitant]
     Active Substance: ATORVASTATIN
  4. RITUXAN [Suspect]
     Active Substance: RITUXIMAB
     Indication: EOSINOPHILIC GRANULOMATOSIS WITH POLYANGIITIS
  5. ACETAMINOPHEN. [Concomitant]
     Active Substance: ACETAMINOPHEN
     Indication: PREMEDICATION
     Route: 048
     Dates: start: 20150928
  6. TELMISARTAN. [Concomitant]
     Active Substance: TELMISARTAN
  7. CODEINE CONTIN [Concomitant]
     Active Substance: CODEINE SULFATE
  8. METHYLPREDNISOLONE. [Concomitant]
     Active Substance: METHYLPREDNISOLONE
     Indication: PREMEDICATION
     Route: 042
     Dates: start: 20150928
  9. PREDNISONE. [Concomitant]
     Active Substance: PREDNISONE
  10. SYMBICORT [Concomitant]
     Active Substance: BUDESONIDE\FORMOTEROL FUMARATE DIHYDRATE

REACTIONS (12)
  - Nasopharyngitis [Not Recovered/Not Resolved]
  - Heart rate increased [Unknown]
  - Eosinophilic granulomatosis with polyangiitis [Not Recovered/Not Resolved]
  - Death [Fatal]
  - Blood pressure fluctuation [Unknown]
  - Dyspnoea [Not Recovered/Not Resolved]
  - Blood pressure fluctuation [Unknown]
  - Somnolence [Unknown]
  - Skin ulcer [Not Recovered/Not Resolved]
  - Meningeal disorder [Not Recovered/Not Resolved]
  - Off label use [Unknown]
  - Weight increased [Unknown]

NARRATIVE: CASE EVENT DATE: 20150928
